FAERS Safety Report 8579760-4 (Version None)
Quarter: 2012Q3

REPORT INFORMATION
  Report Type: 
  Country: None (occurrence: None)
  Receive Date: 20120808
  Receipt Date: 20120731
  Transmission Date: 20120928
  Serious: Yes (Hospitalization)
  Sender: FDA-Public Use
  Company Number: US-ACTELION-A-NJ2012-68648

PATIENT
  Age: 74 Year
  Sex: Female

DRUGS (2)
  1. TRACLEER [Suspect]
     Indication: PULMONARY ARTERIAL HYPERTENSION
     Dosage: 125 MG, BID
     Route: 048
     Dates: start: 20080701
  2. TRACLEER [Suspect]
     Dosage: 62.5 MG, BID
     Route: 048
     Dates: start: 20060601, end: 20080701

REACTIONS (8)
  - TRANSFUSION [None]
  - FALL [None]
  - HAEMOGLOBIN DECREASED [None]
  - FATIGUE [None]
  - ANAEMIA [None]
  - DIZZINESS [None]
  - HAEMATOCRIT DECREASED [None]
  - TREMOR [None]
